FAERS Safety Report 5405092-9 (Version None)
Quarter: 2007Q3

REPORT INFORMATION
  Report Type: 
  Country: None (occurrence: None)
  Receive Date: 20070803
  Receipt Date: 20070724
  Transmission Date: 20080115
  Serious: Yes (Hospitalization, Other)
  Sender: FDA-Public Use
  Company Number: US-PURDUE-USA_2007_0028537

PATIENT
  Sex: Female

DRUGS (4)
  1. OXYCONTIN [Suspect]
     Indication: PAIN
     Dosage: 40 MG, BID
     Route: 048
  2. OXYCONTIN [Suspect]
     Dosage: 20 MG, BID
     Route: 048
  3. OXYIR [Suspect]
     Indication: PAIN
     Dosage: 15 MG, Q4- 6H PRN
     Route: 048
  4. FENTANYL [Concomitant]
     Indication: PAIN
     Dosage: UNK, UNK

REACTIONS (15)
  - ANXIETY [None]
  - DEHYDRATION [None]
  - DEPRESSION [None]
  - DIARRHOEA [None]
  - ELECTROCARDIOGRAM ABNORMAL [None]
  - FATIGUE [None]
  - HEART RATE IRREGULAR [None]
  - HOSPITALISATION [None]
  - HYPERHIDROSIS [None]
  - HYPOKALAEMIA [None]
  - INFARCTION [None]
  - MEMORY IMPAIRMENT [None]
  - PAIN [None]
  - POLLAKIURIA [None]
  - SOMNOLENCE [None]
